FAERS Safety Report 16889069 (Version 1)
Quarter: 2019Q4

REPORT INFORMATION
  Report Type: Spontaneous
  Country: US (occurrence: US)
  Receive Date: 20191007
  Receipt Date: 20191007
  Transmission Date: 20200122
  Serious: No
  Sender: FDA-Public Use
  Company Number: US-DRREDDYS-USA/USA/19/0114601

PATIENT
  Sex: Male
  Weight: 65.25 kg

DRUGS (1)
  1. HABITROL [Suspect]
     Active Substance: NICOTINE
     Indication: TOBACCO USER
     Route: 062
     Dates: start: 20190925

REACTIONS (3)
  - Product quality issue [Unknown]
  - Drug ineffective [Recovering/Resolving]
  - Treatment noncompliance [Unknown]
